FAERS Safety Report 22704252 (Version 4)
Quarter: 2023Q4

REPORT INFORMATION
  Report Type: Spontaneous
  Country: US (occurrence: US)
  Receive Date: 20230714
  Receipt Date: 20231130
  Transmission Date: 20240110
  Serious: No
  Sender: FDA-Public Use
  Company Number: US-SA-SAC20230712001445

PATIENT
  Age: 63 Year
  Sex: Female
  Weight: 71.21 kg

DRUGS (1)
  1. DUPIXENT [Suspect]
     Active Substance: DUPILUMAB
     Indication: Dermatitis atopic
     Dosage: 300 MG, QOW
     Route: 058
     Dates: start: 20230519

REACTIONS (8)
  - Eyelid skin dryness [Unknown]
  - Dry skin [Unknown]
  - Eyelids pruritus [Unknown]
  - Insomnia [Unknown]
  - Pruritus [Unknown]
  - Skin exfoliation [Unknown]
  - Oral herpes [Not Recovered/Not Resolved]
  - Drug ineffective [Unknown]

NARRATIVE: CASE EVENT DATE: 20230101
